FAERS Safety Report 5646685-3 (Version None)
Quarter: 2008Q1

REPORT INFORMATION
  Report Type: 
  Country: None (occurrence: None)
  Receive Date: 20080131
  Receipt Date: 20071110
  Transmission Date: 20080703
  Serious: Yes (Hospitalization)
  Sender: FDA-Public Use
  Company Number: 163-21880-07110566

PATIENT
  Age: 72 Year
  Sex: Female

DRUGS (2)
  1. REVLIMID [Suspect]
     Indication: MULTIPLE MYELOMA
     Dosage: 25 MG, DAILY X21 DAYS, ORAL ; 15 MG, DAILY X21 DAYS, ORAL
     Route: 048
     Dates: start: 20070908, end: 20071101
  2. REVLIMID [Suspect]
     Indication: MULTIPLE MYELOMA
     Dosage: 25 MG, DAILY X21 DAYS, ORAL ; 15 MG, DAILY X21 DAYS, ORAL
     Route: 048
     Dates: start: 20071113

REACTIONS (1)
  - DEEP VEIN THROMBOSIS [None]
